FAERS Safety Report 14924572 (Version 1)
Quarter: 2018Q2

REPORT INFORMATION
  Report Type: Spontaneous
  Country: US (occurrence: US)
  Receive Date: 20180522
  Receipt Date: 20180522
  Transmission Date: 20180711
  Serious: Yes (Other)
  Sender: FDA-Public Use
  Company Number: US-CELGENEUS-USA-20180505560

PATIENT
  Sex: Male

DRUGS (6)
  1. EMPLICITI [Concomitant]
     Active Substance: ELOTUZUMAB
     Indication: MINIMAL RESIDUAL DISEASE
     Route: 065
     Dates: start: 201701
  2. VELCADE [Suspect]
     Active Substance: BORTEZOMIB
     Indication: PLASMA CELL MYELOMA
     Route: 065
     Dates: start: 201204, end: 2018
  3. REVLIMID [Suspect]
     Active Substance: LENALIDOMIDE
     Indication: PLASMA CELL MYELOMA IN REMISSION
     Route: 048
     Dates: start: 201204
  4. DEXAMETHASONE. [Suspect]
     Active Substance: DEXAMETHASONE
     Indication: PLASMA CELL MYELOMA IN REMISSION
     Route: 065
     Dates: start: 201204
  5. DEXAMETHASONE. [Suspect]
     Active Substance: DEXAMETHASONE
     Indication: MINIMAL RESIDUAL DISEASE
     Route: 065
     Dates: start: 201701
  6. REVLIMID [Suspect]
     Active Substance: LENALIDOMIDE
     Indication: MINIMAL RESIDUAL DISEASE
     Route: 048
     Dates: start: 201701

REACTIONS (2)
  - Thrombosis [Unknown]
  - Osteolysis [Unknown]
